FAERS Safety Report 13404924 (Version 1)
Quarter: 2017Q2

REPORT INFORMATION
  Report Type: Other
  Country: CA (occurrence: CA)
  Receive Date: 20170405
  Receipt Date: 20170405
  Transmission Date: 20170830
  Serious: Yes (Other)
  Sender: FDA-Public Use
  Company Number: CA-APOTEX-2017AP009211

PATIENT
  Age: 53 Year
  Sex: Male

DRUGS (1)
  1. APO-MOMETASONE [Suspect]
     Active Substance: MOMETASONE FUROATE
     Indication: SINUSITIS
     Dosage: 50 MG, BID, INTRA-NASAL, SPRAY METERED DOSE
     Route: 045

REACTIONS (1)
  - Anosmia [Recovered/Resolved]
